FAERS Safety Report 20746512 (Version 1)
Quarter: 2022Q2

REPORT INFORMATION
  Report Type: Spontaneous
  Country: US (occurrence: US)
  Receive Date: 20220425
  Receipt Date: 20220425
  Transmission Date: 20220721
  Serious: No
  Sender: FDA-Public Use
  Company Number: US-PFIZER INC-202200175901

PATIENT
  Age: 46 Year
  Sex: Female
  Weight: 74.83 kg

DRUGS (1)
  1. CELECOXIB [Suspect]
     Active Substance: CELECOXIB
     Dosage: 200 MG, 1X/DAY
     Route: 048

REACTIONS (2)
  - Drug ineffective [Unknown]
  - Pain [Unknown]
